FAERS Safety Report 4854072-0 (Version None)
Quarter: 2005Q4

REPORT INFORMATION
  Report Type: 
  Country: None (occurrence: None)
  Receive Date: 20051213
  Receipt Date: 20051202
  Transmission Date: 20060501
  Serious: Yes (Hospitalization, Other)
  Sender: FDA-Public Use
  Company Number: KII-2005-0020084

PATIENT
  Age: 20 Year
  Sex: Male

DRUGS (5)
  1. OXYCONTIN [Suspect]
     Indication: INTENTIONAL DRUG MISUSE
     Route: 048
  2. TRAMADOL HCL [Suspect]
     Indication: INTENTIONAL DRUG MISUSE
     Route: 048
  3. ETHANOL [Suspect]
     Indication: INTENTIONAL DRUG MISUSE
     Route: 048
  4. BENZODIAZEPINE DERIVATIVE [Suspect]
     Indication: INTENTIONAL DRUG MISUSE
     Route: 048
  5. COCAINE [Suspect]
     Indication: INTENTIONAL DRUG MISUSE

REACTIONS (12)
  - AGITATION [None]
  - BLOOD CREATININE INCREASED [None]
  - BLOOD GLUCOSE DECREASED [None]
  - CSF WHITE BLOOD CELL COUNT INCREASED [None]
  - DEPRESSED LEVEL OF CONSCIOUSNESS [None]
  - HYPOTENSION [None]
  - MYOCARDIAL INFARCTION [None]
  - POLYSUBSTANCE ABUSE [None]
  - RESPIRATORY ACIDOSIS [None]
  - RESPIRATORY DEPRESSION [None]
  - TACHYCARDIA [None]
  - VOMITING [None]
